FAERS Safety Report 20777788 (Version 1)
Quarter: 2022Q2

REPORT INFORMATION
  Report Type: Spontaneous
  Country: CA (occurrence: None)
  Receive Date: 20220503
  Receipt Date: 20220503
  Transmission Date: 20220720
  Serious: Yes (Other)
  Sender: FDA-Public Use
  Company Number: CA-ROCHE-3084784

PATIENT
  Age: 52 Year
  Sex: Female

DRUGS (8)
  1. RITUXIMAB [Suspect]
     Active Substance: RITUXIMAB
     Indication: Rheumatoid arthritis
     Route: 042
  2. CYMBALTA [Concomitant]
     Active Substance: DULOXETINE HYDROCHLORIDE
  3. DESOXIMETASONE [Concomitant]
     Active Substance: DESOXIMETASONE
  4. FOLIC ACID [Concomitant]
     Active Substance: FOLIC ACID
  5. METHOTREXATE [Concomitant]
     Active Substance: METHOTREXATE
  6. PREDNISONE [Concomitant]
     Active Substance: PREDNISONE
     Route: 048
  7. RINVOQ [Concomitant]
     Active Substance: UPADACITINIB
  8. XARELTO [Concomitant]
     Active Substance: RIVAROXABAN

REACTIONS (4)
  - Diarrhoea [Recovered/Resolved]
  - Herpes zoster [Recovered/Resolved]
  - Therapeutic product effect incomplete [Recovered/Resolved]
  - Throat irritation [Recovered/Resolved]
